FAERS Safety Report 6636985-2 (Version None)
Quarter: 2010Q1

REPORT INFORMATION
  Report Type: 
  Country: None (occurrence: None)
  Receive Date: 20100316
  Receipt Date: 20100304
  Transmission Date: 20100710
  Serious: Yes (Hospitalization, Other)
  Sender: FDA-Public Use
  Company Number: US-PFIZER INC-2008009086

PATIENT
  Sex: Male
  Weight: 69.1 kg

DRUGS (3)
  1. CHANTIX [Suspect]
     Indication: SMOKING CESSATION THERAPY
     Dates: start: 20071201
  2. COPAXONE [Concomitant]
  3. VITAMINS [Concomitant]

REACTIONS (7)
  - FALL [None]
  - FOOD ALLERGY [None]
  - MEDICATION ERROR [None]
  - PHARYNGEAL OEDEMA [None]
  - RASH [None]
  - SKIN IRRITATION [None]
  - WHITE BLOOD CELL COUNT INCREASED [None]
